FAERS Safety Report 17198361 (Version 5)
Quarter: 2020Q1

REPORT INFORMATION
  Report Type: Spontaneous
  Country: PK (occurrence: PK)
  Receive Date: 20191225
  Receipt Date: 20200306
  Transmission Date: 20200409
  Serious: Yes (Other)
  Sender: FDA-Public Use
  Company Number: PK-AMGEN-PAKSP2019212364

PATIENT
  Age: 46 Year
  Sex: Female
  Weight: 65 kg

DRUGS (13)
  1. ENBREL [Suspect]
     Active Substance: ETANERCEPT
     Indication: FIBROMYALGIA
     Dosage: UNK
     Route: 065
  2. CYMBALTA [Concomitant]
     Active Substance: DULOXETINE HYDROCHLORIDE
     Dosage: 60 MILLIGRAM, BID
  3. METHOTREXATE. [Concomitant]
     Active Substance: METHOTREXATE
     Dosage: 25 MILLIGRAM, QWK
     Route: 058
     Dates: start: 20191201
  4. HYDROXYCHLOROQUINE [Concomitant]
     Active Substance: HYDROXYCHLOROQUINE
     Dosage: 200 MILLIGRAM, QD
  5. DEPO-MEDROL [Concomitant]
     Active Substance: METHYLPREDNISOLONE ACETATE
     Dosage: UNK, (40MG+ 80MG=120 MG, ONCE ONLY) (COMBINE TWO INJECTIONS AND INJECTION IN FLESH ONLY ONCE)
     Route: 030
  6. PRELINE [Concomitant]
     Dosage: 100 MILLIGRAM, BID
  7. ENBREL [Suspect]
     Active Substance: ETANERCEPT
     Indication: SERONEGATIVE ARTHRITIS
     Dosage: 50 MILLIGRAM, QWK
     Route: 058
     Dates: start: 20190525
  8. SALAZODINE [Concomitant]
     Dosage: 500 MILLIGRAM, BID
     Dates: start: 2017
  9. TRAMAL SR [Concomitant]
     Active Substance: TRAMADOL HYDROCHLORIDE
     Dosage: 100 MG, 2X/DAY (MORNING AND EVENING)
  10. FOLIC ACID. [Concomitant]
     Active Substance: FOLIC ACID
     Dosage: 5 MILLIGRAM, QD
     Dates: start: 2017
  11. FASTUM [Concomitant]
     Active Substance: KETOPROFEN
     Dosage: UNK, BID
  12. TRAMAL SR [Concomitant]
     Active Substance: TRAMADOL HYDROCHLORIDE
     Dosage: 100 MILLIGRAM, BID
  13. DOLGINA [Concomitant]
     Dosage: 30 MILLIGRAM, QD

REACTIONS (7)
  - Pain [Recovered/Resolved]
  - Joint swelling [Recovered/Resolved]
  - Haemoglobin decreased [Unknown]
  - Respiratory tract infection [Recovered/Resolved]
  - Blood pressure increased [Unknown]
  - Eosinophilia myalgia syndrome [Recovered/Resolved]
  - Pyrexia [Unknown]
